FAERS Safety Report 7598547-2 (Version None)
Quarter: 2011Q3

REPORT INFORMATION
  Report Type: 
  Country: None (occurrence: None)
  Receive Date: 20110708
  Receipt Date: 20110705
  Transmission Date: 20111222
  Serious: Yes (Disabling)
  Sender: FDA-Public Use
  Company Number: FR-ELI_LILLY_AND_COMPANY-FR201107000664

PATIENT
  Sex: Female
  Weight: 43 kg

DRUGS (2)
  1. UMATROPE [Suspect]
     Indication: TURNER'S SYNDROME
     Dosage: 24MG/3ML, QD
     Route: 058
     Dates: start: 20030101
  2. OMEPRAZOLE [Concomitant]
     Indication: GASTROOESOPHAGEAL REFLUX DISEASE
     Dosage: 20 MG, AT NIGHT
     Route: 048

REACTIONS (1)
  - PULMONARY ARTERIAL HYPERTENSION [None]
